FAERS Safety Report 25635359 (Version 2)
Quarter: 2025Q3

REPORT INFORMATION
  Report Type: Spontaneous
  Country: US (occurrence: US)
  Receive Date: 20250802
  Receipt Date: 20250919
  Transmission Date: 20251021
  Serious: Yes (Other)
  Sender: CHIESI
  Company Number: US-CHIESI-2025CHF05262

PATIENT
  Sex: Male

DRUGS (2)
  1. MYCAPSSA [Suspect]
     Active Substance: OCTREOTIDE
     Indication: Acromegaly
     Dosage: 1 DOSAGE FORM, BID
     Route: 048
  2. MYCAPSSA [Suspect]
     Active Substance: OCTREOTIDE
     Indication: Gigantism

REACTIONS (3)
  - Pituitary tumour [Recovering/Resolving]
  - Gastrointestinal disorder [Recovered/Resolved]
  - Therapeutic response unexpected [Recovered/Resolved]
